FAERS Safety Report 19509705 (Version 2)
Quarter: 2021Q3

REPORT INFORMATION
  Report Type: Spontaneous
  Country: BE (occurrence: BE)
  Receive Date: 20210709
  Receipt Date: 20210720
  Transmission Date: 20211014
  Serious: Yes (Death)
  Sender: FDA-Public Use
  Company Number: BE-009507513-2107BEL000410

PATIENT
  Age: 51 Year
  Sex: Female

DRUGS (7)
  1. VITAMINE D [Concomitant]
     Active Substance: CHOLECALCIFEROL
     Indication: MENOPAUSE
     Dosage: UNK
     Route: 065
  2. ADRIAMYCIN HS [Concomitant]
     Indication: THYMOMA
     Dosage: UNK UNK, CYCLE (AFTER RESTARTING ? AT THE END OF THE 6TH COURSE OF CHEMOTHERAPY...
     Route: 065
  3. ACICLOVIR [Concomitant]
     Active Substance: ACYCLOVIR
     Dosage: UNK
  4. FILGRASTIM [Concomitant]
     Active Substance: FILGRASTIM
     Indication: NEUTROPENIA
     Dosage: 6 DOSAGE FORM (6 INJECTIONS )
     Route: 065
  5. CASPOFUNGIN ACETATE. [Suspect]
     Active Substance: CASPOFUNGIN ACETATE
     Indication: SYSTEMIC CANDIDA
     Dosage: UNK
  6. CYCLOPHOSPHAMIDE. [Concomitant]
     Active Substance: CYCLOPHOSPHAMIDE
     Indication: THYMOMA
     Dosage: UNK UNK, CYCLE
     Route: 065
  7. CISPLATIN. [Concomitant]
     Active Substance: CISPLATIN
     Indication: THYMOMA
     Dosage: UNK UNK, CYCLE
     Route: 065

REACTIONS (1)
  - Drug ineffective [Fatal]
